FAERS Safety Report 10292561 (Version 1)
Quarter: 2014Q3

REPORT INFORMATION
  Report Type: Spontaneous
  Country: US (occurrence: US)
  Receive Date: 20140710
  Receipt Date: 20140710
  Transmission Date: 20150326
  Serious: No
  Sender: FDA-Public Use
  Company Number: US-TARO-2014P1004240

PATIENT
  Age: 14 Year
  Sex: Male
  Weight: 97.52 kg

DRUGS (4)
  1. CALCIUM SUPPLEMENT [Concomitant]
     Active Substance: CALCIUM
  2. RANITIDINE [Concomitant]
     Active Substance: RANITIDINE\RANITIDINE HYDROCHLORIDE
  3. MOTRIN [Concomitant]
     Active Substance: IBUPROFEN
  4. DESOXIMETASONE OINTMENT USP 0.25% [Suspect]
     Active Substance: DESOXIMETASONE
     Dosage: QD
     Route: 061
     Dates: start: 20140121, end: 20140516

REACTIONS (7)
  - Blood corticotrophin decreased [Unknown]
  - Epistaxis [Recovering/Resolving]
  - Metamorphopsia [Not Recovered/Not Resolved]
  - Headache [Not Recovered/Not Resolved]
  - Eye pain [Not Recovered/Not Resolved]
  - Blood cortisol decreased [Unknown]
  - Vision blurred [Unknown]

NARRATIVE: CASE EVENT DATE: 2014
